FAERS Safety Report 25483469 (Version 3)
Quarter: 2025Q3

REPORT INFORMATION
  Report Type: Spontaneous
  Country: EU (occurrence: EU)
  Receive Date: 20250626
  Receipt Date: 20250718
  Transmission Date: 20251021
  Serious: No
  Sender: PFIZER
  Company Number: None

PATIENT
  Age: 24 Year
  Sex: Female
  Weight: 89 kg

DRUGS (1)
  1. CLINDAMYCIN PHOSPHATE [Suspect]
     Active Substance: CLINDAMYCIN PHOSPHATE
     Indication: Vulvovaginal inflammation
     Dosage: 1 DF, 1X/DAY
     Route: 067
     Dates: start: 20250515, end: 20250521

REACTIONS (4)
  - Rash pruritic [Recovering/Resolving]
  - Vulvovaginal pain [Recovering/Resolving]
  - Rash [Recovering/Resolving]
  - Dermatitis acneiform [Recovering/Resolving]

NARRATIVE: CASE EVENT DATE: 20250528
